FAERS Safety Report 14010911 (Version 1)
Quarter: 2017Q3

REPORT INFORMATION
  Report Type: Spontaneous
  Country: US (occurrence: US)
  Receive Date: 20170926
  Receipt Date: 20170926
  Transmission Date: 20171128
  Serious: Yes (Other)
  Sender: FDA-Public Use
  Company Number: US-PFIZER INC-2017411335

PATIENT
  Age: 50 Year
  Sex: Male
  Weight: 77.11 kg

DRUGS (2)
  1. CHANTIX [Suspect]
     Active Substance: VARENICLINE TARTRATE
     Indication: SMOKING CESSATION THERAPY
     Dosage: 0.5 MG, UNK
     Dates: start: 20170913, end: 201709
  2. CHANTIX [Suspect]
     Active Substance: VARENICLINE TARTRATE
     Dosage: TWO 0.5MG TABLETS
     Dates: start: 20170917, end: 20170920

REACTIONS (2)
  - Suicidal ideation [Recovering/Resolving]
  - Depression [Recovering/Resolving]

NARRATIVE: CASE EVENT DATE: 20170917
